FAERS Safety Report 20889825 (Version 2)
Quarter: 2022Q2

REPORT INFORMATION
  Report Type: Other
  Country: US (occurrence: None)
  Receive Date: 20220530
  Receipt Date: 20220601
  Transmission Date: 20220720
  Serious: Yes (Death)
  Sender: FDA-Public Use
  Company Number: US-ROCHE-3105010

PATIENT
  Age: 59 Year
  Sex: Male

DRUGS (2)
  1. XELODA [Suspect]
     Active Substance: CAPECITABINE
     Indication: Colorectal cancer metastatic
     Dosage: TAKE 3 TABLET(S) BY MOUTH TWICE A DAY TAKE FOR 7 DAYS ON THEN 7 DAYS OFF THEN REPEAT
     Route: 048
  2. XELODA [Suspect]
     Active Substance: CAPECITABINE
     Indication: Colon cancer

REACTIONS (1)
  - Death [Fatal]

NARRATIVE: CASE EVENT DATE: 20220520
